FAERS Safety Report 4697140-9 (Version None)
Quarter: 2005Q2

REPORT INFORMATION
  Report Type: 
  Country: None (occurrence: None)
  Receive Date: 20050622
  Receipt Date: 20050610
  Transmission Date: 20051028
  Serious: Yes (Hospitalization)
  Sender: FDA-Public Use
  Company Number: FR-ROCHE-407449

PATIENT
  Age: 43 Year
  Sex: Male
  Weight: 64 kg

DRUGS (4)
  1. INVIRASE [Suspect]
     Dosage: DOSAGE REGIMEN: 6 CAPSULES.
     Route: 048
  2. NORVIR [Suspect]
     Route: 048
  3. RETROVIR [Suspect]
     Route: 048
  4. VIDEX [Suspect]
     Route: 048

REACTIONS (3)
  - ACUTE CORONARY SYNDROME [None]
  - ANGINA PECTORIS [None]
  - ISCHAEMIC CARDIOMYOPATHY [None]
